FAERS Safety Report 9681017 (Version 1)
Quarter: 2013Q4

REPORT INFORMATION
  Report Type: Report from Study
  Country: US (occurrence: US)
  Receive Date: 20131111
  Receipt Date: 20131111
  Transmission Date: 20140711
  Serious: Yes (Life-Threatening, Other)
  Sender: FDA-Public Use
  Company Number: US-ELI_LILLY_AND_COMPANY-US201311000898

PATIENT
  Age: 55 Year
  Sex: Female

DRUGS (14)
  1. CYMBALTA [Suspect]
     Indication: PRODUCT USED FOR UNKNOWN INDICATION
     Dosage: 1 DF, UNKNOWN
     Route: 048
  2. FLUOXETINE HYDROCHLORIDE [Suspect]
     Indication: PRODUCT USED FOR UNKNOWN INDICATION
     Dosage: 40 MG, BID
     Route: 048
     Dates: end: 20130207
  3. WELLBUTRIN [Suspect]
     Indication: PRODUCT USED FOR UNKNOWN INDICATION
     Dosage: 1 DF, UNKNOWN
     Route: 048
  4. FLEXERIL [Suspect]
     Indication: PRODUCT USED FOR UNKNOWN INDICATION
     Dosage: 1 DF, UNKNOWN
     Route: 048
  5. NEURONTIN [Suspect]
     Indication: PRODUCT USED FOR UNKNOWN INDICATION
     Dosage: 1 DF, UNKNOWN
     Route: 048
  6. ABILIFY [Concomitant]
     Dosage: 2.5 MG, QD
  7. BUSPAR [Concomitant]
     Indication: NERVOUSNESS
     Dosage: 7.5 MG, PRN
  8. BUSPAR [Concomitant]
     Dosage: 15 MG, PRN
     Route: 048
  9. ERYTHROMYCIN [Concomitant]
     Dosage: UNK, BID
     Route: 061
  10. KENALOG [Concomitant]
     Dosage: 60 MG, OTHER
     Route: 030
  11. ZOLOFT [Concomitant]
     Dosage: 200 MG, QD
     Route: 048
  12. MAXALT [Concomitant]
     Indication: HEADACHE
     Dosage: 5 MG, PRN
     Route: 048
  13. SKELAXIN [Concomitant]
     Indication: PAIN
     Dosage: 800 MG, PRN
     Route: 048
  14. TIMOLOL MALEATE [Concomitant]
     Dosage: 10 MG, BID
     Route: 048
     Dates: end: 20130207

REACTIONS (5)
  - Anaphylactic reaction [Unknown]
  - Inappropriate antidiuretic hormone secretion [Unknown]
  - Dizziness [Unknown]
  - Ecchymosis [Unknown]
  - Rash generalised [Unknown]
